FAERS Safety Report 5676207-2 (Version None)
Quarter: 2008Q1

REPORT INFORMATION
  Report Type: 
  Country: None (occurrence: None)
  Receive Date: 20080321
  Receipt Date: 20080312
  Transmission Date: 20080703
  Serious: Yes (Death, Life-Threatening, Other)
  Sender: FDA-Public Use
  Company Number: GB-PFIZER INC-2007091127

PATIENT
  Sex: Female

DRUGS (2)
  1. SUTENT [Suspect]
     Indication: METASTATIC RENAL CELL CARCINOMA
     Route: 048
  2. ANTIHYPERTENSIVES [Concomitant]

REACTIONS (17)
  - ABASIA [None]
  - ANOREXIA [None]
  - ASTHENIA [None]
  - CIRCULATORY COLLAPSE [None]
  - COGNITIVE DISORDER [None]
  - CONVULSION [None]
  - COORDINATION ABNORMAL [None]
  - DISEASE PROGRESSION [None]
  - HYPERTENSION [None]
  - LOSS OF CONSCIOUSNESS [None]
  - MALAISE [None]
  - MENTAL IMPAIRMENT [None]
  - METASTATIC RENAL CELL CARCINOMA [None]
  - NAUSEA [None]
  - THROMBOSIS [None]
  - TREMOR [None]
  - VISUAL DISTURBANCE [None]
